FAERS Safety Report 8374936-3 (Version None)
Quarter: 2012Q2

REPORT INFORMATION
  Report Type: 
  Country: None (occurrence: None)
  Receive Date: 20120521
  Receipt Date: 20120511
  Transmission Date: 20120825
  Serious: No
  Sender: FDA-Public Use
  Company Number: US-ASTRAZENECA-2012SE30763

PATIENT
  Age: 54 Year
  Sex: Male

DRUGS (1)
  1. SEROQUEL [Suspect]
     Indication: INSOMNIA
     Route: 048
     Dates: start: 20060101

REACTIONS (3)
  - INTENTIONAL DRUG MISUSE [None]
  - INSOMNIA [None]
  - OFF LABEL USE [None]
